FAERS Safety Report 12779496 (Version 1)
Quarter: 2016Q3

REPORT INFORMATION
  Report Type: Spontaneous
  Country: US (occurrence: US)
  Receive Date: 20160923
  Receipt Date: 20160923
  Transmission Date: 20161109
  Serious: No
  Sender: FDA-Public Use
  Company Number: None

PATIENT
  Age: 27 Year
  Sex: Female
  Weight: 63 kg

DRUGS (2)
  1. CREST PRO-HEALTH ADVANCED [Suspect]
     Active Substance: STANNOUS FLUORIDE
     Indication: DENTAL CARE
     Dosage: OTHER STRENGTH:;OTHER DOSE:TUBE;OTHER FREQUENCY:;OTHER ROUTE:BRUSHED ONTO TEETH
     Dates: start: 20160916, end: 20160921
  2. NUVARING [Concomitant]
     Active Substance: ETHINYL ESTRADIOL\ETONOGESTREL

REACTIONS (9)
  - Toothache [None]
  - Tongue blistering [None]
  - Lip swelling [None]
  - Stomatitis [None]
  - Oral mucosal exfoliation [None]
  - Lip pain [None]
  - Oral pain [None]
  - Dry mouth [None]
  - Glossodynia [None]

NARRATIVE: CASE EVENT DATE: 20160918
